FAERS Safety Report 24786384 (Version 1)
Quarter: 2024Q4

REPORT INFORMATION
  Report Type: Spontaneous
  Country: FR (occurrence: FR)
  Receive Date: 20241230
  Receipt Date: 20241230
  Transmission Date: 20250114
  Serious: Yes (Other)
  Sender: CELLTRION
  Company Number: None

PATIENT

DRUGS (1)
  1. INFLIXIMAB [Suspect]
     Active Substance: INFLIXIMAB
     Indication: Spondylitis
     Dosage: 7.5 MG 1 CYCLE (C8)
     Route: 058
     Dates: start: 20240430, end: 20240430

REACTIONS (1)
  - Larynx irritation [Recovered/Resolved]

NARRATIVE: CASE EVENT DATE: 20240430
